FAERS Safety Report 20924025 (Version 2)
Quarter: 2022Q2

REPORT INFORMATION
  Report Type: Spontaneous
  Country: FR (occurrence: FR)
  Receive Date: 20220607
  Receipt Date: 20220623
  Transmission Date: 20220721
  Serious: Yes (Hospitalization, Other)
  Sender: FDA-Public Use
  Company Number: FR-009507513-2206FRA001181

PATIENT
  Age: 70 Year
  Sex: Female
  Weight: 50.5 kg

DRUGS (9)
  1. KEYTRUDA [Suspect]
     Active Substance: PEMBROLIZUMAB
     Indication: Lung adenocarcinoma
     Dosage: 200 MILLIGRAM, EVERY 3 WEEKS (Q3W)
     Route: 042
     Dates: start: 20191213
  2. KEYTRUDA [Suspect]
     Active Substance: PEMBROLIZUMAB
     Dosage: 400 MILLIGRAM, EVERY 6 WEEKS
     Route: 042
     Dates: start: 20200918
  3. KEYTRUDA [Suspect]
     Active Substance: PEMBROLIZUMAB
     Dosage: 400 MILLIGRAM, EVERY 6 WEEKS
     Route: 042
     Dates: start: 20220428, end: 20220428
  4. VENLAFAXINE [Concomitant]
     Active Substance: VENLAFAXINE HYDROCHLORIDE
     Indication: Depression
     Dosage: 75 MILLIGRAM, QD
  5. ELIQUIS [Concomitant]
     Active Substance: APIXABAN
     Indication: Pulmonary embolism
     Dosage: 5 MILLIGRAM, BID
  6. LEVOTHYROXINE [Concomitant]
     Active Substance: LEVOTHYROXINE
     Indication: Basedow^s disease
     Dosage: 150 MICROGRAM, QD
  7. CALCIUM\CHOLECALCIFEROL [Concomitant]
     Active Substance: CALCIUM\CHOLECALCIFEROL
     Dosage: 2 DOSAGE FORM, QD
  8. PANTOPRAZOLE [Concomitant]
     Active Substance: PANTOPRAZOLE
     Indication: Gastric ulcer
     Dosage: 20 MILLIGRAM, QD
  9. ANETHOLTRITHION [Concomitant]
     Active Substance: ANETHOLTRITHION
     Indication: Alopecia
     Dosage: 3 DOSAGE FORM, QD

REACTIONS (3)
  - Colitis ulcerative [Recovered/Resolved]
  - Immune-mediated hypothyroidism [Unknown]
  - Immune-mediated enterocolitis [Recovered/Resolved]

NARRATIVE: CASE EVENT DATE: 20220510
